FAERS Safety Report 16639588 (Version 2)
Quarter: 2019Q3

REPORT INFORMATION
  Report Type: Spontaneous
  Country: US (occurrence: US)
  Receive Date: 20190726
  Receipt Date: 20190809
  Transmission Date: 20191004
  Serious: Yes (Other)
  Sender: FDA-Public Use
  Company Number: US-UNITED THERAPEUTICS-UNT-2019-008383

PATIENT
  Age: 76 Year
  Sex: Male
  Weight: 68.27 kg

DRUGS (4)
  1. OPSUMIT [Concomitant]
     Active Substance: MACITENTAN
     Indication: PRODUCT USED FOR UNKNOWN INDICATION
     Dosage: UNK
     Route: 065
  2. REMODULIN [Suspect]
     Active Substance: TREPROSTINIL
     Indication: PULMONARY ARTERIAL HYPERTENSION
     Dosage: 0.046 ?G/KG, CONTINUING
     Route: 058
     Dates: start: 20180314
  3. REMODULIN [Suspect]
     Active Substance: TREPROSTINIL
     Dosage: 0.022, CONTINUING
     Route: 058
  4. REMODULIN [Suspect]
     Active Substance: TREPROSTINIL
     Dosage: 0.042 ?G/KG, CONTINUING
     Route: 058

REACTIONS (4)
  - Oedema [Recovered/Resolved]
  - Diarrhoea [Not Recovered/Not Resolved]
  - Blood iron decreased [Unknown]
  - Pericardial effusion [Unknown]

NARRATIVE: CASE EVENT DATE: 201903
